FAERS Safety Report 6387580-4 (Version None)
Quarter: 2009Q3

REPORT INFORMATION
  Report Type: 
  Country: None (occurrence: None)
  Receive Date: 20090930
  Receipt Date: 20090924
  Transmission Date: 20100115
  Serious: Yes (Death, Hospitalization)
  Sender: FDA-Public Use
  Company Number: SPV1-2009-01896

PATIENT
  Age: 81 Year
  Sex: Male

DRUGS (2)
  1. FOSRENOL [Suspect]
  2. DIABETIC MEDICATION [Concomitant]

REACTIONS (6)
  - ABNORMAL LOSS OF WEIGHT [None]
  - LOCALISED INFECTION [None]
  - MYOCARDIAL INFARCTION [None]
  - SUDDEN DEATH [None]
  - THROMBOSIS [None]
  - TOE AMPUTATION [None]
